FAERS Safety Report 13461449 (Version 1)
Quarter: 2017Q2

REPORT INFORMATION
  Report Type: Spontaneous
  Country: US (occurrence: US)
  Receive Date: 20170418
  Receipt Date: 20170418
  Transmission Date: 20170830
  Serious: Yes (Hospitalization)
  Sender: FDA-Public Use
  Company Number: None

PATIENT
  Age: 57 Year
  Sex: Male
  Weight: 46.76 kg

DRUGS (15)
  1. PEMBROLIZUMAB. [Concomitant]
     Active Substance: PEMBROLIZUMAB
  2. FLUOROURACIL. [Concomitant]
     Active Substance: FLUOROURACIL
  3. METOCLOPRAMIDE. [Concomitant]
     Active Substance: METOCLOPRAMIDE
  4. LOPERAMIDE [Concomitant]
     Active Substance: LOPERAMIDE
  5. OLANZAPINE. [Concomitant]
     Active Substance: OLANZAPINE
  6. PROCHLORPERAZINE. [Concomitant]
     Active Substance: PROCHLORPERAZINE
  7. TRASTUZUMAB [Concomitant]
     Active Substance: TRASTUZUMAB
  8. GABAPENTIN. [Concomitant]
     Active Substance: GABAPENTIN
  9. ONDANSETRON [Concomitant]
     Active Substance: ONDANSETRON
  10. DALTOPARIN 15,000 IU DAY [Suspect]
     Active Substance: DALTEPARIN
     Indication: PULMONARY EMBOLISM
     Route: 058
     Dates: start: 20170308
  11. LOSARTAN. [Concomitant]
     Active Substance: LOSARTAN
  12. TRAMADOL. [Concomitant]
     Active Substance: TRAMADOL
  13. LORAZEPAM. [Concomitant]
     Active Substance: LORAZEPAM
  14. MIRALAX [Concomitant]
     Active Substance: POLYETHYLENE GLYCOL 3350
  15. KC1 [Concomitant]

REACTIONS (3)
  - Vomiting [None]
  - Nausea [None]
  - Acute kidney injury [None]

NARRATIVE: CASE EVENT DATE: 20170418
